FAERS Safety Report 7828505-1 (Version None)
Quarter: 2011Q4

REPORT INFORMATION
  Report Type: 
  Country: None (occurrence: None)
  Receive Date: 20111020
  Receipt Date: 20111010
  Transmission Date: 20120403
  Serious: Yes (Hospitalization, Other)
  Sender: FDA-Public Use
  Company Number: US-ABBOTT-11P-163-0853002-00

PATIENT
  Age: 31 Year
  Sex: Female

DRUGS (1)
  1. LUPRON DEPOT [Suspect]
     Indication: PRODUCT USED FOR UNKNOWN INDICATION
     Dates: start: 20110819

REACTIONS (6)
  - GASTROINTESTINAL SOUNDS ABNORMAL [None]
  - VOMITING [None]
  - PELVIC FLUID COLLECTION [None]
  - NAUSEA [None]
  - APPENDICITIS [None]
  - OVARIAN CYST RUPTURED [None]
